FAERS Safety Report 8485289 (Version 3)
Quarter: 2012Q4

REPORT INFORMATION
  Report Type: 
  Country: JP (occurrence: JP)
  Receive Date: 20120330
  Receipt Date: 20120919
  Transmission Date: 20130627
  Serious: Yes (Other)
  Sender: FDA-Public Use
  Company Number: JP-GLAXOSMITHKLINE-B0782223A

PATIENT
  Age: 39 Year
  Sex: Female

DRUGS (11)
  1. LAMICTAL [Suspect]
     Indication: BORDERLINE PERSONALITY DISORDER
     Dosage: 25MG Per day
     Route: 048
     Dates: start: 20111115, end: 20111128
  2. LAMICTAL [Suspect]
     Indication: BORDERLINE PERSONALITY DISORDER
     Dosage: 50MG Per day
     Route: 048
     Dates: start: 20111129, end: 20111212
  3. LAMICTAL [Suspect]
     Indication: BORDERLINE PERSONALITY DISORDER
     Dosage: 100MG Per day
     Route: 048
     Dates: start: 20111213, end: 20111219
  4. LAMICTAL [Suspect]
     Indication: BORDERLINE PERSONALITY DISORDER
     Dosage: 200MG Per day
     Route: 048
     Dates: start: 20111220, end: 20120316
  5. LAMICTAL [Suspect]
     Indication: BORDERLINE PERSONALITY DISORDER
     Dosage: 25MG Per day
     Route: 048
     Dates: start: 20120409, end: 20120422
  6. LAMICTAL [Suspect]
     Indication: BORDERLINE PERSONALITY DISORDER
     Dosage: 50MG Per day
     Route: 048
     Dates: start: 20120423, end: 20120506
  7. LAMICTAL [Suspect]
     Indication: BORDERLINE PERSONALITY DISORDER
     Dosage: 100MG Per day
     Route: 048
     Dates: start: 20120507, end: 20120513
  8. LAMICTAL [Suspect]
     Indication: BORDERLINE PERSONALITY DISORDER
     Dosage: 200MG Per day
     Route: 048
     Dates: start: 20120514
  9. JZOLOFT [Concomitant]
     Route: 048
  10. LANDSEN [Concomitant]
     Indication: IRRITABILITY
     Route: 048
     Dates: start: 20110628
  11. LOXOMARIN [Concomitant]
     Indication: HEADACHE
     Route: 048

REACTIONS (2)
  - Alopecia [Recovered/Resolved]
  - Alopecia areata [Unknown]
